FAERS Safety Report 16475350 (Version 1)
Quarter: 2019Q2

REPORT INFORMATION
  Report Type: Spontaneous
  Country: DE (occurrence: DE)
  Receive Date: 20190625
  Receipt Date: 20190625
  Transmission Date: 20190711
  Serious: Yes (Hospitalization)
  Sender: FDA-Public Use
  Company Number: DE-ACELRX PHARMACEUTICALS, INC-ACEL20192296

PATIENT
  Age: 66 Year
  Sex: Female

DRUGS (3)
  1. OCTENIDERM [Suspect]
     Active Substance: ISOPROPYL ALCOHOL\OCTENIDINE HYDROCHLORIDE\PROPYL ALCOHOL
     Indication: INFECTION PROPHYLAXIS
     Dosage: UNKNOWN
     Route: 003
     Dates: start: 20190116
  2. SUFENTANIL [Suspect]
     Active Substance: SUFENTANIL
     Indication: PRODUCT USED FOR UNKNOWN INDICATION
     Dosage: UNKNOWN
     Route: 065
  3. BUPIVACAIN [Suspect]
     Active Substance: BUPIVACAINE
     Indication: SPINAL ANAESTHESIA
     Dosage: UNKNOWN
     Route: 065

REACTIONS (9)
  - Radiculopathy [Not Recovered/Not Resolved]
  - Nausea [Unknown]
  - Pleocytosis [Not Recovered/Not Resolved]
  - Paraparesis [Not Recovered/Not Resolved]
  - Arachnoiditis [Not Recovered/Not Resolved]
  - Anorectal disorder [Unknown]
  - Malaise [Recovered/Resolved]
  - Bladder dysfunction [Unknown]
  - Headache [Recovered/Resolved]

NARRATIVE: CASE EVENT DATE: 201901
